FAERS Safety Report 11210666 (Version 1)
Quarter: 2015Q2

REPORT INFORMATION
  Report Type: Spontaneous
  Country: US (occurrence: US)
  Receive Date: 20150622
  Receipt Date: 20150622
  Transmission Date: 20150821
  Serious: No
  Sender: FDA-Public Use
  Company Number: US-SA-2015SA018762

PATIENT
  Sex: Female

DRUGS (2)
  1. HECTOROL [Suspect]
     Active Substance: DOXERCALCIFEROL
     Indication: CHRONIC KIDNEY DISEASE
     Route: 065
  2. HECTOROL [Suspect]
     Active Substance: DOXERCALCIFEROL
     Indication: CHRONIC KIDNEY DISEASE
     Route: 065

REACTIONS (1)
  - Drug ineffective [Unknown]

NARRATIVE: CASE EVENT DATE: 2015
